FAERS Safety Report 9705824 (Version 3)
Quarter: 2015Q3

REPORT INFORMATION
  Report Type: Spontaneous
  Country: US (occurrence: US)
  Receive Date: 20131122
  Receipt Date: 20150803
  Transmission Date: 20151125
  Serious: No
  Sender: FDA-Public Use
  Company Number: US-GILEAD-2008-0017991

PATIENT
  Age: 42 Year
  Sex: Male

DRUGS (5)
  1. LETAIRIS [Suspect]
     Active Substance: AMBRISENTAN
     Indication: PULMONARY ARTERIAL HYPERTENSION
     Route: 048
     Dates: start: 20080606
  2. MEDROL [Concomitant]
     Active Substance: METHYLPREDNISOLONE
  3. ALBUTEROL. [Concomitant]
     Active Substance: ALBUTEROL
  4. BENZONATATE. [Concomitant]
     Active Substance: BENZONATATE
  5. LEVAQUIN [Concomitant]
     Active Substance: LEVOFLOXACIN

REACTIONS (1)
  - Pneumonia [Unknown]

NARRATIVE: CASE EVENT DATE: 20080902
